FAERS Safety Report 9256089 (Version 1)
Quarter: 2013Q2

REPORT INFORMATION
  Report Type: Spontaneous
  Country: US (occurrence: US)
  Receive Date: 20130425
  Receipt Date: 20130425
  Transmission Date: 20140414
  Serious: No
  Sender: FDA-Public Use
  Company Number: US-AMGEN-USASP2012036826

PATIENT
  Age: 76 Year
  Sex: Male

DRUGS (6)
  1. NEULASTA [Suspect]
     Indication: CERVICAL DYSPLASIA
     Dosage: 6 MG, UNK
     Dates: start: 20120609
  2. FLUDARABINE /01004602/ [Concomitant]
     Dosage: UNK UNK, QMO
     Dates: start: 201203
  3. CYCLOPHOSPHAMIDE [Concomitant]
     Dosage: UNK UNK, QMO
     Dates: start: 201203
  4. RITUXIMAB [Concomitant]
     Dosage: UNK UNK, QMO
     Dates: start: 201203
  5. ACYCLOVIR                          /00587301/ [Concomitant]
     Dosage: 2 MG, UNK
  6. BACTRIM DS [Concomitant]
     Dosage: UNK

REACTIONS (6)
  - Pyrexia [Recovering/Resolving]
  - Nausea [Recovering/Resolving]
  - Depressive symptom [Recovering/Resolving]
  - Bowel movement irregularity [Recovered/Resolved]
  - Diarrhoea [Unknown]
  - Bone pain [Recovering/Resolving]
